FAERS Safety Report 14393364 (Version 1)
Quarter: 2018Q1

REPORT INFORMATION
  Report Type: Spontaneous
  Country: US (occurrence: US)
  Receive Date: 20180114
  Receipt Date: 20180114
  Transmission Date: 20180509
  Serious: Yes (Other)
  Sender: FDA-Public Use
  Company Number: None

PATIENT
  Age: 70 Year
  Sex: Male
  Weight: 70.4 kg

DRUGS (13)
  1. TUMS [Concomitant]
     Active Substance: CALCIUM CARBONATE
  2. OXYCODONE [Concomitant]
     Active Substance: OXYCODONE
  3. NAFCILLIN [Suspect]
     Active Substance: NAFCILLIN\NAFCILLIN SODIUM
     Indication: BACTERAEMIA
     Route: 041
     Dates: start: 20180102, end: 20180108
  4. KETOROLAC [Concomitant]
     Active Substance: KETOROLAC\KETOROLAC TROMETHAMINE
  5. MORPHINE [Concomitant]
     Active Substance: MORPHINE
  6. ONDANSETRON [Concomitant]
     Active Substance: ONDANSETRON
  7. MAALOX ANTACID [Concomitant]
     Active Substance: ALUMINUM HYDROXIDE\DIMETHICONE\MAGNESIUM HYDROXIDE
  8. VANCOMYCIN [Concomitant]
     Active Substance: VANCOMYCIN
  9. NAFCILLIN [Suspect]
     Active Substance: NAFCILLIN\NAFCILLIN SODIUM
     Indication: STAPHYLOCOCCAL BACTERAEMIA
     Route: 041
     Dates: start: 20180102, end: 20180108
  10. FAMOTIDINE. [Concomitant]
     Active Substance: FAMOTIDINE
  11. HUMALOG [Concomitant]
     Active Substance: INSULIN LISPRO
  12. ACETAMINOPHEN. [Concomitant]
     Active Substance: ACETAMINOPHEN
  13. CULTURELLE [Concomitant]
     Active Substance: LACTOBACILLUS RHAMNOSUS

REACTIONS (1)
  - Thrombocytopenia [None]

NARRATIVE: CASE EVENT DATE: 20170108
